FAERS Safety Report 5951959-2 (Version None)
Quarter: 2008Q4

REPORT INFORMATION
  Report Type: 
  Country: None (occurrence: None)
  Receive Date: 20081113
  Receipt Date: 20071002
  Transmission Date: 20090506
  Serious: No
  Sender: FDA-Public Use
  Company Number: A0685633A

PATIENT
  Age: 74 Year
  Sex: Female

DRUGS (11)
  1. COREG [Suspect]
     Indication: HYPERTENSION
     Dosage: 30MG PER DAY
     Route: 048
     Dates: start: 20070801, end: 20071001
  2. SPIRIVA [Concomitant]
  3. LEVOTHYROXINE SODIUM [Concomitant]
  4. PREVACID [Concomitant]
  5. DIURETIC [Concomitant]
  6. ASPIRIN [Concomitant]
  7. RANITIDINE [Concomitant]
  8. QUINAPRIL [Concomitant]
  9. PROCARDIA [Concomitant]
  10. SIMVASTATIN [Concomitant]
  11. GABAPENTIN [Concomitant]

REACTIONS (1)
  - DYSPNOEA [None]
